FAERS Safety Report 9037576 (Version 1)
Quarter: 2013Q1

REPORT INFORMATION
  Report Type: Spontaneous
  Country: JP (occurrence: JP)
  Receive Date: 20130129
  Receipt Date: 20130129
  Transmission Date: 20140127
  Serious: Yes (Other)
  Sender: FDA-Public Use
  Company Number: JP-PAR PHARMACEUTICAL, INC-2013SCPR005450

PATIENT
  Sex: 0

DRUGS (3)
  1. NIFEDIPINE [Suspect]
     Indication: HYPERTENSION
     Dosage: 40 MG, / DAY
     Route: 065
  2. METFORMIN [Concomitant]
     Indication: TYPE 2 DIABETES MELLITUS
     Dosage: 500 MG, / DAY
     Route: 048
  3. METFORMIN [Concomitant]
     Dosage: 750 MG, / DAY
     Route: 048

REACTIONS (4)
  - Tooth loss [Not Recovered/Not Resolved]
  - Periodontitis [Recovering/Resolving]
  - Glycosylated haemoglobin increased [Recovered/Resolved]
  - Gingival hyperplasia [Recovered/Resolved]
